FAERS Safety Report 7355782-6 (Version None)
Quarter: 2011Q1

REPORT INFORMATION
  Report Type: 
  Country: None (occurrence: None)
  Receive Date: 20110307
  Receipt Date: 20110223
  Transmission Date: 20110831
  Serious: Yes (Disabling)
  Sender: FDA-Public Use
  Company Number: 2011MA001705

PATIENT
  Age: 24 Year
  Sex: Female

DRUGS (3)
  1. SEROQUEL [Suspect]
     Dosage: 100 MG
  2. CELEXA [Suspect]
     Dosage: 20 MG
  3. GABAPENTIN [Suspect]
     Dosage: 300 MG

REACTIONS (4)
  - SOMNOLENCE [None]
  - SLOW RESPONSE TO STIMULI [None]
  - DYSARTHRIA [None]
  - IMPAIRED DRIVING ABILITY [None]
